FAERS Safety Report 18406558 (Version 1)
Quarter: 2020Q4

REPORT INFORMATION
  Report Type: Spontaneous
  Country: IN (occurrence: IN)
  Receive Date: 20201020
  Receipt Date: 20201020
  Transmission Date: 20210114
  Serious: Yes (Other)
  Sender: FDA-Public Use
  Company Number: IN-TOLMAR, INC.-20IN023404

PATIENT
  Age: 28 Year
  Sex: Female

DRUGS (2)
  1. HUMAN CHORIONIC GONADOTROPIN [Suspect]
     Active Substance: GONADOTROPHIN, CHORIONIC
     Indication: OVULATION INDUCTION
     Dosage: 1500 INTERNATIONAL UNIT
     Route: 030
  2. ELIGARD [Suspect]
     Active Substance: LEUPROLIDE ACETATE
     Indication: OVULATION INDUCTION
     Dosage: 1 MG
     Route: 058

REACTIONS (3)
  - Ovarian hyperstimulation syndrome [Unknown]
  - Abortion spontaneous [Unknown]
  - Off label use [Unknown]
